FAERS Safety Report 5915443-4 (Version None)
Quarter: 2008Q4

REPORT INFORMATION
  Report Type: 
  Country: None (occurrence: None)
  Receive Date: 20081010
  Receipt Date: 20080930
  Transmission Date: 20090506
  Serious: Yes (Hospitalization, Disabling)
  Sender: FDA-Public Use
  Company Number: IN-ELI_LILLY_AND_COMPANY-IN200810000700

PATIENT
  Age: 45 Year
  Sex: Female

DRUGS (1)
  1. HUMULIN 70/30 [Suspect]
     Indication: DIABETES MELLITUS
     Dosage: 25 U, PER DAY
     Route: 058
     Dates: start: 20080401, end: 20080801

REACTIONS (5)
  - ABASIA [None]
  - FATIGUE [None]
  - HOSPITALISATION [None]
  - OEDEMA PERIPHERAL [None]
  - RASH [None]
